FAERS Safety Report 9222669 (Version 1)
Quarter: 2013Q1

REPORT INFORMATION
  Report Type: Spontaneous
  Country: US (occurrence: None)
  Receive Date: 20120912
  Receipt Date: 20120912
  Transmission Date: 20140127
  Serious: No
  Sender: FDA-Public Use
  Company Number: 2012SP028857

PATIENT
  Age: 52 Year
  Sex: Female

DRUGS (3)
  1. VICTRELIS 200 MG [Suspect]
     Indication: HEPATITIS C
     Route: 048
     Dates: start: 20120223
  2. PEGASYS [Suspect]
     Indication: HEPATITIS C
  3. RIBAVIRIN [Suspect]
     Indication: HEPATITIS C

REACTIONS (2)
  - Back pain [None]
  - Diarrhoea [None]
